FAERS Safety Report 7199047-4 (Version None)
Quarter: 2010Q4

REPORT INFORMATION
  Report Type: 
  Country: None (occurrence: None)
  Receive Date: 20101228
  Receipt Date: 20101217
  Transmission Date: 20110411
  Serious: No
  Sender: FDA-Public Use
  Company Number: US-BIOGENIDEC-2010BI044349

PATIENT
  Sex: Female

DRUGS (1)
  1. TYSABRI [Suspect]
     Indication: MULTIPLE SCLEROSIS
     Route: 042
     Dates: start: 20080715, end: 20090716

REACTIONS (5)
  - DECREASED IMMUNE RESPONSIVENESS [None]
  - DEPRESSION [None]
  - MALAISE [None]
  - METABOLIC DISORDER [None]
  - T-LYMPHOCYTE COUNT ABNORMAL [None]
